FAERS Safety Report 5190018-6 (Version None)
Quarter: 2006Q4

REPORT INFORMATION
  Report Type: 
  Country: None (occurrence: None)
  Receive Date: 20061218
  Receipt Date: 20061205
  Transmission Date: 20070319
  Serious: Yes (Hospitalization)
  Sender: FDA-Public Use
  Company Number: 2006144174

PATIENT
  Age: 67 Year
  Sex: Female
  Weight: 67.4 kg

DRUGS (2)
  1. DOXORUBICIN HYDROCHLORIDE [Suspect]
     Indication: BREAST CANCER
     Dosage: 102, 6 MG (50 MG, DAY1: 3 WEEKS), INTRAVENOUS
     Route: 042
     Dates: start: 20061027
  2. PACLITAXEL [Suspect]
     Indication: BREAST CANCER
     Dosage: 342 MG (300 MG, DAY1: 3 WEEKS), INTRAVENOUS
     Route: 042
     Dates: start: 20061027

REACTIONS (3)
  - BRONCHIOLITIS [None]
  - CHEST PAIN [None]
  - FEBRILE NEUTROPENIA [None]
